FAERS Safety Report 17768582 (Version 2)
Quarter: 2020Q2

REPORT INFORMATION
  Report Type: Spontaneous
  Country: HU (occurrence: HU)
  Receive Date: 20200512
  Receipt Date: 20200526
  Transmission Date: 20200714
  Serious: Yes (Other)
  Sender: FDA-Public Use
  Company Number: HU-BIOGEN-2020BI00871349

PATIENT
  Age: 14 Year
  Sex: Female

DRUGS (6)
  1. SPINRAZA [Suspect]
     Active Substance: NUSINERSEN
     Indication: SPINAL MUSCULAR ATROPHY
     Dosage: 12MG/ 5ML
     Route: 037
     Dates: start: 20200130
  2. SPINRAZA [Suspect]
     Active Substance: NUSINERSEN
     Dosage: 12MG/ 5ML
     Route: 037
     Dates: start: 20200227, end: 20200227
  3. SPINRAZA [Suspect]
     Active Substance: NUSINERSEN
     Dosage: 12MG/ 5ML
     Route: 037
  4. SPINRAZA [Suspect]
     Active Substance: NUSINERSEN
     Dosage: 12MG/ 5ML
     Route: 037
  5. VITAMIN D [Concomitant]
     Active Substance: VITAMIN D NOS
     Indication: VITAMIN D DEFICIENCY
     Route: 065
  6. SPINRAZA [Suspect]
     Active Substance: NUSINERSEN
     Dosage: 12MG/ 5ML
     Route: 037

REACTIONS (1)
  - Alopecia [Unknown]

NARRATIVE: CASE EVENT DATE: 202002
